FAERS Safety Report 7232463-0 (Version None)
Quarter: 2011Q1

REPORT INFORMATION
  Report Type: 
  Country: None (occurrence: None)
  Receive Date: 20110105
  Receipt Date: 20101222
  Transmission Date: 20110831
  Serious: Yes (Death, Life-Threatening, Hospitalization, Other)
  Sender: FDA-Public Use
  Company Number: 2009AC000068

PATIENT
  Age: 50 Year
  Sex: Male
  Weight: 160.5733 kg

DRUGS (40)
  1. COREG [Concomitant]
  2. IMDUR [Concomitant]
  3. COLCHICINE [Concomitant]
  4. THERAGRAM [Concomitant]
  5. ZOCOR [Concomitant]
  6. FLUOXETINE [Concomitant]
  7. ALDACTONE [Concomitant]
  8. ASPIRIN [Concomitant]
  9. POTASSIUM CHLORIDE [Concomitant]
  10. INSULIN [Concomitant]
  11. ZAROXOLYN [Concomitant]
  12. NITREX [Concomitant]
  13. AMIODARONE [Concomitant]
  14. NOVOLIN 70/30 [Concomitant]
  15. NOVOLOG [Concomitant]
  16. ACYCLOVIR [Concomitant]
  17. DIGOXIN [Suspect]
     Dosage: 0.125 MG; QD; PO   0.25 MG;4 DOSES; IV
     Route: 048
     Dates: start: 20030501, end: 20080201
  18. DIGOXIN [Suspect]
     Dosage: 0.125 MG; QD; PO   0.25 MG;4 DOSES; IV
     Route: 048
     Dates: start: 20030529, end: 20030501
  19. DIOVAN [Concomitant]
  20. FERO-GRAD [Concomitant]
  21. LASIX [Concomitant]
  22. LEVAQUIN [Concomitant]
  23. ALLOPURINOL [Concomitant]
  24. ZAROXOLYN [Concomitant]
  25. PREVACID [Concomitant]
  26. INSPRA [Concomitant]
  27. AMARYL [Concomitant]
  28. K- DUR [Concomitant]
  29. FUROSEMIDE [Concomitant]
  30. PLAVIX [Concomitant]
  31. FOLIC ACID [Concomitant]
  32. NITROGLYCERIN [Concomitant]
  33. MULTI-VITAMIN [Concomitant]
  34. NITROGLYCERIN [Concomitant]
  35. CORDARONE [Concomitant]
  36. MAGOXIDE [Concomitant]
  37. ASPIRIN [Concomitant]
  38. METFORMIN HCL [Concomitant]
  39. FOLTX [Concomitant]
  40. PLAXIL [Concomitant]

REACTIONS (44)
  - EMOTIONAL DISORDER [None]
  - SLEEP APNOEA SYNDROME [None]
  - CORONARY ARTERY OCCLUSION [None]
  - DIARRHOEA [None]
  - LIVER FUNCTION TEST ABNORMAL [None]
  - AZOTAEMIA [None]
  - CARDIO-RESPIRATORY ARREST [None]
  - PAIN [None]
  - MYOCARDIAL INFARCTION [None]
  - HYPOXIC-ISCHAEMIC ENCEPHALOPATHY [None]
  - RESPIRATORY FAILURE [None]
  - ANAEMIA [None]
  - AORTIC VALVE INCOMPETENCE [None]
  - ACUTE RESPIRATORY FAILURE [None]
  - MULTI-ORGAN FAILURE [None]
  - SOCIAL AVOIDANT BEHAVIOUR [None]
  - TRICUSPID VALVE INCOMPETENCE [None]
  - CARDIAC FAILURE CONGESTIVE [None]
  - VENTRICULAR TACHYCARDIA [None]
  - CARDIOACTIVE DRUG LEVEL INCREASED [None]
  - ATRIOVENTRICULAR BLOCK FIRST DEGREE [None]
  - PRODUCT QUALITY ISSUE [None]
  - INJURY [None]
  - MITRAL VALVE CALCIFICATION [None]
  - PULSELESS ELECTRICAL ACTIVITY [None]
  - CARDIOACTIVE DRUG LEVEL BELOW THERAPEUTIC [None]
  - ILL-DEFINED DISORDER [None]
  - ECONOMIC PROBLEM [None]
  - MITRAL VALVE INCOMPETENCE [None]
  - VENTRICULAR FIBRILLATION [None]
  - HYPOTENSION [None]
  - CAROTID ARTERIOSCLEROSIS [None]
  - AORTIC VALVE SCLEROSIS [None]
  - AREFLEXIA [None]
  - IMPAIRED WORK ABILITY [None]
  - PULMONARY HYPERTENSION [None]
  - RENAL FAILURE ACUTE [None]
  - BLOOD PRESSURE INADEQUATELY CONTROLLED [None]
  - FALL [None]
  - URINARY TRACT INFECTION [None]
  - SEPSIS [None]
  - DEHYDRATION [None]
  - HERPES ZOSTER [None]
  - HYPOKALAEMIA [None]
